FAERS Safety Report 8515402-1 (Version None)
Quarter: 2012Q2

REPORT INFORMATION
  Report Type: 
  Country: None (occurrence: None)
  Receive Date: 20120406
  Receipt Date: 20090430
  Transmission Date: 20120825
  Serious: Yes (Hospitalization, Other)
  Sender: FDA-Public Use
  Company Number: PHEH2008US02087

PATIENT
  Age: 60 Year
  Weight: 80 kg

DRUGS (9)
  1. NITROGLYCERIN ^AL.^ (GLYCERYL TRINITRATE) [Concomitant]
  2. TASIGNA [Suspect]
     Indication: CHRONIC MYELOID LEUKAEMIA
     Dosage: 400 MG, BID, ORAL
     Dates: start: 20071211, end: 20080307
  3. CELEXA [Concomitant]
  4. METOPROLOL TARTRATE [Concomitant]
  5. MEVACOR [Concomitant]
  6. SYNTHROID [Concomitant]
  7. ASPIRIN [Concomitant]
  8. AMLODIPINE [Concomitant]
  9. AMBIEN [Concomitant]

REACTIONS (13)
  - DYSPNOEA [None]
  - PLEURAL EFFUSION [None]
  - PAINFUL RESPIRATION [None]
  - DYSPNOEA EXERTIONAL [None]
  - CHEST DISCOMFORT [None]
  - COUGH [None]
  - ANGINA PECTORIS [None]
  - CARDIAC FAILURE CONGESTIVE [None]
  - ABDOMINAL PAIN [None]
  - NECK PAIN [None]
  - OEDEMA PERIPHERAL [None]
  - CARDIOMEGALY [None]
  - BRAIN NATRIURETIC PEPTIDE INCREASED [None]
